FAERS Safety Report 11344576 (Version 1)
Quarter: 2015Q3

REPORT INFORMATION
  Report Type: Spontaneous
  Country: US (occurrence: US)
  Receive Date: 20150806
  Receipt Date: 20150806
  Transmission Date: 20151125
  Serious: No
  Sender: FDA-Public Use
  Company Number: US-BAUSCH-2014ST000118

PATIENT
  Sex: Female

DRUGS (1)
  1. GLUMETZA [Suspect]
     Active Substance: METFORMIN HYDROCHLORIDE
     Dosage: UNK
     Route: 048
     Dates: start: 2014, end: 2014

REACTIONS (8)
  - Headache [Unknown]
  - Lethargy [Unknown]
  - Palpitations [Unknown]
  - Blood glucose increased [Unknown]
  - Fluid retention [Unknown]
  - Hypoaesthesia [Unknown]
  - Feeling hot [Unknown]
  - Malaise [Unknown]

NARRATIVE: CASE EVENT DATE: 2014
